FAERS Safety Report 10442824 (Version 1)
Quarter: 2014Q3

REPORT INFORMATION
  Report Type: Other
  Country: GB (occurrence: GB)
  Receive Date: 20140909
  Receipt Date: 20140909
  Transmission Date: 20150326
  Serious: Yes (Other)
  Sender: FDA-Public Use
  Company Number: GB-MYLAN-2014M1003313

PATIENT

DRUGS (6)
  1. STUGERON [Concomitant]
     Active Substance: CINNARIZINE
     Dosage: ONE DOSE
     Dates: start: 20140719, end: 20140719
  2. LOSARTAN POTASSIUM. [Suspect]
     Active Substance: LOSARTAN POTASSIUM
     Indication: ESSENTIAL HYPERTENSION
     Dosage: 25 MG, QD
     Route: 048
     Dates: start: 20140710, end: 20140813
  3. LEVOTHYROXINE [Concomitant]
     Active Substance: LEVOTHYROXINE
     Dosage: OCCASIONAL
  4. LORATADINE. [Concomitant]
     Active Substance: LORATADINE
     Dosage: OCCASIONAL
  5. PARACETAMOL [Concomitant]
     Active Substance: ACETAMINOPHEN
     Dosage: DAILY
  6. STUGERON [Concomitant]
     Active Substance: CINNARIZINE
     Dosage: ONE DOSE
     Dates: start: 20140712, end: 20140712

REACTIONS (4)
  - Pain [Recovered/Resolved]
  - Fatigue [Recovered/Resolved]
  - Back pain [Recovered/Resolved]
  - Malaise [Recovered/Resolved]

NARRATIVE: CASE EVENT DATE: 20140712
